FAERS Safety Report 5809467-5 (Version None)
Quarter: 2008Q3

REPORT INFORMATION
  Report Type: 
  Country: None (occurrence: None)
  Receive Date: 20080715
  Receipt Date: 20080709
  Transmission Date: 20090109
  Serious: Yes (Death, Other)
  Sender: FDA-Public Use
  Company Number: GB-WYE-G00599907

PATIENT
  Age: 56 Year
  Sex: Female

DRUGS (10)
  1. VENLAFAXINE HYDROCHLORIDE [Suspect]
     Indication: DEPRESSION
     Dosage: 150 MG FREQUENCY UNKNOWN
     Route: 048
     Dates: start: 20040801
  2. ASPIRIN [Concomitant]
     Dosage: UNKNOWN
  3. CO-TENIDONE [Concomitant]
     Dosage: UNKNOWN
  4. SIMVASTATIN [Concomitant]
     Dosage: UNKNOWN
  5. LERCANIDIPINE [Concomitant]
     Dosage: UNKNOWN
  6. PERINDOPRIL ERBUMINE [Concomitant]
     Dosage: UNKNOWN
  7. PREMARIN [Concomitant]
     Dosage: UNKNOWN
  8. PROPRANOLOL [Concomitant]
     Dosage: UNKNOWN
  9. AMITRIPTYLINE HCL [Concomitant]
     Dosage: UNKNOWN
  10. IMDUR [Concomitant]
     Dosage: UNKNOWN

REACTIONS (1)
  - SUDDEN CARDIAC DEATH [None]
